FAERS Safety Report 8431197-4 (Version None)
Quarter: 2012Q2

REPORT INFORMATION
  Report Type: 
  Country: None (occurrence: None)
  Receive Date: 20120612
  Receipt Date: 20120608
  Transmission Date: 20120825
  Serious: Yes (Other)
  Sender: FDA-Public Use
  Company Number: PHHY2012GB049433

PATIENT
  Age: 69 Year
  Sex: Female

DRUGS (8)
  1. CHOLESTYRAMINE [Concomitant]
  2. METFORMIN HCL [Concomitant]
  3. URSODIOL [Concomitant]
  4. RAMIPRIL [Concomitant]
  5. OMEPRAZOLE [Concomitant]
  6. PROPRANOLOL [Concomitant]
  7. INSULIN [Concomitant]
     Route: 058
  8. RIFAMPICIN [Suspect]
     Indication: PRURITUS
     Dosage: 300 MG, DAILY

REACTIONS (3)
  - CYSTITIS [None]
  - COAGULOPATHY [None]
  - HYPOPROTHROMBINAEMIA [None]
